FAERS Safety Report 11488021 (Version 1)
Quarter: 2015Q3

REPORT INFORMATION
  Report Type: Spontaneous
  Country: US (occurrence: US)
  Receive Date: 20150909
  Receipt Date: 20150909
  Transmission Date: 20151125
  Serious: No
  Sender: FDA-Public Use
  Company Number: US-BAYER-2015-418411

PATIENT
  Age: 8 Year
  Sex: Female
  Weight: 18.14 kg

DRUGS (2)
  1. ALBUTEROL NEBULIZER [Concomitant]
     Active Substance: ALBUTEROL
     Dosage: UNK
     Dates: start: 20150907
  2. CHILDREN CLARITIN ALLERGY [Suspect]
     Active Substance: LORATADINE
     Dosage: UNK

REACTIONS (2)
  - Product use issue [None]
  - Urticaria [None]
